FAERS Safety Report 7749162-9 (Version None)
Quarter: 2011Q3

REPORT INFORMATION
  Report Type: 
  Country: None (occurrence: None)
  Receive Date: 20110909
  Receipt Date: 20110826
  Transmission Date: 20111222
  Serious: Yes (Other)
  Sender: FDA-Public Use
  Company Number: 2011GB0246

PATIENT
  Age: 75 Year
  Sex: Female

DRUGS (2)
  1. KINERET [Suspect]
     Indication: RHEUMATOID ARTHRITIS
     Dosage: 100 MG (100 MG, 1 IN 1 D)
     Dates: start: 20030315, end: 20030915
  2. METHOTREXATE [Concomitant]

REACTIONS (1)
  - CARCINOMA IN SITU OF SKIN [None]
